FAERS Safety Report 8608486-3 (Version None)
Quarter: 2012Q3

REPORT INFORMATION
  Report Type: 
  Country: None (occurrence: None)
  Receive Date: 20120821
  Receipt Date: 20120816
  Transmission Date: 20120928
  Serious: Yes (Other)
  Sender: FDA-Public Use
  Company Number: US-BAYER-2012-085382

PATIENT
  Age: 61 Year
  Sex: Female
  Weight: 82 kg

DRUGS (14)
  1. ALEVE (CAPLET) [Suspect]
     Dosage: UNK
     Route: 048
     Dates: start: 20120816
  2. CLOPIDEGREL [Concomitant]
  3. PANTOPRAZOLE [Concomitant]
  4. VENLAFAXINE [Concomitant]
  5. COMBIPATCH [Concomitant]
  6. OXYBUTYNIN [Concomitant]
  7. ANTI-DIABETICS [Concomitant]
  8. METFORMIN HCL [Concomitant]
  9. METOCLOPRAMIDE [Concomitant]
  10. ISOSORBIDE [Concomitant]
  11. ANTI-DIABETICS [Concomitant]
  12. SIMVASTATIN [Concomitant]
  13. SPIRONOLACTONE [Concomitant]
  14. UNKNOWN [Concomitant]

REACTIONS (5)
  - PRURITUS GENERALISED [None]
  - PALPITATIONS [None]
  - DYSPHAGIA [None]
  - HYPERSENSITIVITY [None]
  - RESPIRATORY RATE INCREASED [None]
